FAERS Safety Report 8462503-2 (Version None)
Quarter: 2012Q2

REPORT INFORMATION
  Report Type: 
  Country: None (occurrence: None)
  Receive Date: 20120625
  Receipt Date: 20120620
  Transmission Date: 20120825
  Serious: Yes (Life-Threatening, Hospitalization, Other)
  Sender: FDA-Public Use
  Company Number: PHHY2012NZ031054

PATIENT
  Sex: Male
  Weight: 106.3 kg

DRUGS (1)
  1. CLOZARIL [Suspect]
     Indication: SCHIZOPHRENIA
     Dosage: 325 MG
     Route: 048
     Dates: start: 20040504, end: 20120312

REACTIONS (13)
  - RESTRICTIVE CARDIOMYOPATHY [None]
  - CARDIOMYOPATHY [None]
  - TACHYCARDIA [None]
  - CONGESTIVE CARDIOMYOPATHY [None]
  - PNEUMONIA [None]
  - DYSPNOEA [None]
  - C-REACTIVE PROTEIN INCREASED [None]
  - BLOOD GLUCOSE INCREASED [None]
  - CHEST PAIN [None]
  - DIZZINESS [None]
  - HYPERTROPHIC CARDIOMYOPATHY [None]
  - FATIGUE [None]
  - EXERCISE TOLERANCE DECREASED [None]
